FAERS Safety Report 17573223 (Version 4)
Quarter: 2020Q3

REPORT INFORMATION
  Report Type: Spontaneous
  Country: FR (occurrence: FR)
  Receive Date: 20200323
  Receipt Date: 20200805
  Transmission Date: 20201102
  Serious: Yes (Other)
  Sender: FDA-Public Use
  Company Number: FR-US-PROVELL PHARMACEUTICALS LLC-9088568

PATIENT
  Age: 38 Year
  Sex: Male

DRUGS (4)
  1. LEVOTHYROX 200 [Suspect]
     Active Substance: LEVOTHYROXINE SODIUM
     Indication: HYPOTHYROIDISM
     Dates: start: 201612
  2. LEVOTHYROX 200 [Suspect]
     Active Substance: LEVOTHYROXINE SODIUM
  3. LEVOTHYROX 200 [Suspect]
     Active Substance: LEVOTHYROXINE SODIUM
     Dates: start: 201703, end: 201710
  4. LEVOTHYROX 200 [Suspect]
     Active Substance: LEVOTHYROXINE SODIUM
     Dosage: 150 UG AND 200 UG
     Dates: start: 201703, end: 201708

REACTIONS (28)
  - Alopecia [Recovered/Resolved]
  - Sleep disorder [Unknown]
  - Liver disorder [Recovered/Resolved]
  - Weight increased [Recovered/Resolved]
  - Meniscus injury [Unknown]
  - Somnolence [Unknown]
  - Hepatic pain [Unknown]
  - Vasodilatation [Unknown]
  - Diarrhoea [Unknown]
  - Headache [Unknown]
  - Ligament injury [Unknown]
  - Myalgia [Recovered/Resolved]
  - Tension [Unknown]
  - Alanine aminotransferase increased [Recovered/Resolved]
  - Swelling [Recovered/Resolved]
  - Pruritus [Unknown]
  - Joint effusion [Recovered/Resolved]
  - Blood creatine phosphokinase increased [Recovered/Resolved]
  - Arthralgia [Unknown]
  - Gait disturbance [Unknown]
  - Insomnia [Unknown]
  - Arthritis [Unknown]
  - Dyspnoea [Recovered/Resolved]
  - Muscle contracture [Recovered/Resolved]
  - Fatigue [Recovered/Resolved]
  - Asthenia [Unknown]
  - Blood thyroid stimulating hormone increased [Recovered/Resolved]
  - Aspartate aminotransferase increased [Recovered/Resolved]

NARRATIVE: CASE EVENT DATE: 2017
